FAERS Safety Report 8965572 (Version 1)
Quarter: 2012Q4

REPORT INFORMATION
  Report Type: Spontaneous
  Country: DE (occurrence: None)
  Receive Date: 20121205
  Receipt Date: 20121205
  Transmission Date: 20130627
  Serious: Yes (Life-Threatening, Hospitalization, Congenital Anomaly, Other)
  Sender: FDA-Public Use
  Company Number: 2012-20732

PATIENT
  Sex: Female

DRUGS (1)
  1. FLUOXETINE HYDROCHLORIDE [Suspect]
     Indication: DEPRESSION
     Route: 064
     Dates: start: 20110430, end: 20120202

REACTIONS (8)
  - Neonatal asphyxia [None]
  - Persistent foetal circulation [None]
  - Atelectasis neonatal [None]
  - Atrial septal defect [None]
  - Patent ductus arteriosus [None]
  - Maternal drugs affecting foetus [None]
  - Caesarean section [None]
  - Cyanosis neonatal [None]
